FAERS Safety Report 5005162-3 (Version None)
Quarter: 2006Q2

REPORT INFORMATION
  Report Type: 
  Country: None (occurrence: None)
  Receive Date: 20060515
  Receipt Date: 20060501
  Transmission Date: 20061013
  Serious: Yes (Hospitalization)
  Sender: FDA-Public Use
  Company Number: CLOF-10226

PATIENT
  Age: 5 Year
  Sex: Male
  Weight: 18.2 kg

DRUGS (8)
  1. CLOFARABINE [Suspect]
     Indication: T-CELL TYPE ACUTE LEUKAEMIA
     Dosage: 15 MG QD X 5 IV
     Route: 042
     Dates: start: 20060311, end: 20060315
  2. CLOFARABINE [Suspect]
     Indication: T-CELL TYPE ACUTE LEUKAEMIA
     Dosage: 15 MG QD X 5 IV
     Route: 042
     Dates: start: 20060408, end: 20060412
  3. ETOPOSIDE [Suspect]
     Indication: T-CELL TYPE ACUTE LEUKAEMIA
     Dosage: 56 MG IV
     Route: 042
     Dates: start: 20060311, end: 20060412
  4. CYCLOPHOSPHAMIDE [Suspect]
     Indication: T-CELL TYPE ACUTE LEUKAEMIA
     Dosage: 255 MG IV
     Route: 042
     Dates: start: 20060311, end: 20060412
  5. DAPSONE [Concomitant]
  6. NEUPOGEN [Concomitant]
  7. CIPROFLOXACIN [Concomitant]
  8. FLUCONAZOLE [Concomitant]

REACTIONS (4)
  - BK VIRUS INFECTION [None]
  - CYSTITIS [None]
  - FEBRILE NEUTROPENIA [None]
  - NEUTROPENIC SEPSIS [None]
